FAERS Safety Report 23549903 (Version 1)
Quarter: 2024Q1

REPORT INFORMATION
  Report Type: Spontaneous
  Country: CA (occurrence: CA)
  Receive Date: 20240221
  Receipt Date: 20240221
  Transmission Date: 20240410
  Serious: Yes (Disabling)
  Sender: FDA-Public Use
  Company Number: CA-FreseniusKabi-FK202402737

PATIENT
  Age: 75 Year
  Sex: Male

DRUGS (1)
  1. AMIODARONE [Suspect]
     Active Substance: AMIODARONE
     Indication: Product used for unknown indication
     Dosage: DOSAGE FORM: NOT SPECIFIED

REACTIONS (4)
  - Dyspnoea [Unknown]
  - Emphysema [Unknown]
  - Lung opacity [Unknown]
  - Pulmonary fibrosis [Unknown]
